FAERS Safety Report 5117992-8 (Version None)
Quarter: 2006Q3

REPORT INFORMATION
  Report Type: 
  Country: None (occurrence: None)
  Receive Date: 20060929
  Receipt Date: 20060922
  Transmission Date: 20061208
  Serious: Yes (Life-Threatening, Hospitalization)
  Sender: FDA-Public Use
  Company Number: JP-JNJFOC-20060901967

PATIENT
  Sex: Male

DRUGS (12)
  1. RISPERDAL [Suspect]
     Route: 048
  2. RISPERDAL [Suspect]
     Indication: DEMENTIA
     Route: 048
  3. ARICEPT [Suspect]
     Route: 048
  4. ARICEPT [Suspect]
     Indication: DEMENTIA
     Route: 048
  5. PLETAL [Concomitant]
     Indication: DRUG USE FOR UNKNOWN INDICATION
     Route: 048
  6. MENESIT [Concomitant]
     Indication: DEMENTIA
     Route: 048
  7. CABASER [Concomitant]
     Indication: DEMENTIA
     Route: 048
  8. BUP-4 [Concomitant]
     Indication: DEMENTIA
     Route: 048
  9. PROMETHAZINE HCL [Concomitant]
     Indication: DEMENTIA
     Route: 048
  10. AMARYL [Concomitant]
     Indication: DIABETES MELLITUS
     Route: 048
  11. PURSENNID [Concomitant]
     Indication: DEMENTIA
     Route: 048
  12. SORENTMIN [Concomitant]
     Indication: DEMENTIA
     Route: 048

REACTIONS (2)
  - ATRIOVENTRICULAR BLOCK THIRD DEGREE [None]
  - NEUROLEPTIC MALIGNANT SYNDROME [None]
